FAERS Safety Report 18357107 (Version 5)
Quarter: 2020Q4

REPORT INFORMATION
  Report Type: Report from Study
  Country: US (occurrence: US)
  Receive Date: 20201007
  Receipt Date: 20201117
  Transmission Date: 20210114
  Serious: Yes (Other)
  Sender: FDA-Public Use
  Company Number: US-JNJFOC-20200948857

PATIENT
  Age: 19 Year
  Sex: Male

DRUGS (2)
  1. STELARA [Suspect]
     Active Substance: USTEKINUMAB
     Indication: CROHN^S DISEASE
     Route: 058
     Dates: start: 20200409
  2. STELARA [Suspect]
     Active Substance: USTEKINUMAB
     Dosage: 45.00 MG / 0.50 ML
     Route: 058

REACTIONS (9)
  - Diarrhoea [Unknown]
  - Product use issue [Unknown]
  - Fatigue [Unknown]
  - Rectal haemorrhage [Unknown]
  - Headache [Unknown]
  - Inappropriate schedule of product administration [Unknown]
  - Inappropriate schedule of product administration [Unknown]
  - Off label use [Unknown]
  - Abdominal pain [Unknown]

NARRATIVE: CASE EVENT DATE: 20200912
